FAERS Safety Report 21609337 (Version 1)
Quarter: 2022Q4

REPORT INFORMATION
  Report Type: Spontaneous
  Country: IT (occurrence: IT)
  Receive Date: 20221117
  Receipt Date: 20221117
  Transmission Date: 20230113
  Serious: Yes (Other)
  Sender: FDA-Public Use
  Company Number: IT-PFIZER INC-PV202200104656

PATIENT
  Age: 55 Year
  Sex: Female
  Weight: 73 kg

DRUGS (1)
  1. INFLIXIMAB [Suspect]
     Active Substance: INFLIXIMAB
     Dosage: UNK
     Route: 065
     Dates: start: 20220518, end: 20220903

REACTIONS (2)
  - Dermatitis bullous [Recovered/Resolved]
  - Pruritus [Recovered/Resolved]
